FAERS Safety Report 9649252 (Version 2)
Quarter: 2013Q4

REPORT INFORMATION
  Report Type: Spontaneous
  Country: US (occurrence: US)
  Receive Date: 20131028
  Receipt Date: 20131113
  Transmission Date: 20140711
  Serious: Yes (Hospitalization)
  Sender: FDA-Public Use
  Company Number: US-GLAXOSMITHKLINE-A1046993A

PATIENT
  Age: 54 Year
  Sex: Female

DRUGS (2)
  1. COREG CR [Suspect]
     Indication: CARDIAC FAILURE
     Dosage: 20MG UNKNOWN
     Route: 065
  2. CARVEDILOL [Suspect]
     Indication: CARDIOMYOPATHY
     Route: 065

REACTIONS (9)
  - Meningioma [Unknown]
  - Investigation [Unknown]
  - Suffocation feeling [Unknown]
  - Nightmare [Unknown]
  - Craniotomy [Unknown]
  - Hypotension [Unknown]
  - Drug effect decreased [Unknown]
  - Fatigue [Unknown]
  - Angina pectoris [Unknown]
